FAERS Safety Report 10901633 (Version 3)
Quarter: 2015Q2

REPORT INFORMATION
  Report Type: Spontaneous
  Country: JP (occurrence: JP)
  Receive Date: 20150310
  Receipt Date: 20150416
  Transmission Date: 20150821
  Serious: Yes (Other)
  Sender: FDA-Public Use
  Company Number: JP-009507513-1503JPN004068

PATIENT
  Age: 56 Year
  Sex: Male
  Weight: 57 kg

DRUGS (9)
  1. GLIADEL [Suspect]
     Active Substance: CARMUSTINE
     Indication: GLIOBLASTOMA MULTIFORME
     Dosage: 30.8 MG, UNK
     Dates: start: 20150114
  2. AVASTIN [Suspect]
     Active Substance: BEVACIZUMAB
     Dosage: 565 MG, QD
     Route: 041
     Dates: start: 20150223, end: 20150223
  3. ZOFRAN [Concomitant]
     Active Substance: ONDANSETRON HYDROCHLORIDE
     Indication: PROPHYLAXIS
     Dosage: 4 MG, QD
     Route: 048
     Dates: start: 20140126, end: 20150308
  4. PREDONINE [Concomitant]
     Active Substance: PREDNISOLONE\PREDNISOLONE ACETATE\PREDNISOLONE SODIUM SUCCINATE
     Indication: BRAIN OEDEMA
     Dosage: 10 MG, BID
     Route: 048
     Dates: start: 20150123, end: 20150127
  5. AVASTIN [Suspect]
     Active Substance: BEVACIZUMAB
     Indication: GLIOBLASTOMA MULTIFORME
     Dosage: 565 MG, QD
     Route: 041
     Dates: start: 20150126, end: 20150126
  6. AVASTIN [Suspect]
     Active Substance: BEVACIZUMAB
     Dosage: 565 MG, QD
     Route: 041
     Dates: start: 20150309, end: 20150309
  7. LAMICTAL [Concomitant]
     Active Substance: LAMOTRIGINE
     Indication: PROPHYLAXIS
     Dosage: 25 MG, QD
     Route: 048
     Dates: start: 20150117
  8. TEMODAL [Suspect]
     Active Substance: TEMOZOLOMIDE
     Indication: GLIOBLASTOMA MULTIFORME
     Dosage: 120 MG, QD
     Route: 048
     Dates: start: 20150126, end: 20150308
  9. AVASTIN [Suspect]
     Active Substance: BEVACIZUMAB
     Dosage: 565 MG, QD
     Route: 041
     Dates: start: 20150209, end: 20150209

REACTIONS (1)
  - Ear discomfort [Not Recovered/Not Resolved]

NARRATIVE: CASE EVENT DATE: 20150126
